FAERS Safety Report 21471239 (Version 5)
Quarter: 2025Q3

REPORT INFORMATION
  Report Type: Report from Study
  Country: US (occurrence: US)
  Receive Date: 20221018
  Receipt Date: 20250710
  Transmission Date: 20251020
  Serious: Yes (Death, Hospitalization, Other)
  Sender: JAZZ
  Company Number: US-JAZZ-2022-US-032519

PATIENT
  Sex: Female
  Weight: 10.5 kg

DRUGS (1)
  1. EPIDIOLEX [Suspect]
     Active Substance: CANNABIDIOL
     Indication: Lennox-Gastaut syndrome
     Dosage: 1.1 MILLILITER, BID
     Route: 048

REACTIONS (3)
  - Death [Fatal]
  - Urticaria [Not Recovered/Not Resolved]
  - Enteral nutrition [Unknown]
